FAERS Safety Report 24242518 (Version 3)
Quarter: 2024Q3

REPORT INFORMATION
  Report Type: Spontaneous
  Country: CL (occurrence: CL)
  Receive Date: 20240823
  Receipt Date: 20240913
  Transmission Date: 20241016
  Serious: Yes (Other)
  Sender: ROCHE
  Company Number: CL-ROCHE-10000039818

PATIENT
  Sex: Female

DRUGS (4)
  1. TECENTRIQ [Suspect]
     Active Substance: ATEZOLIZUMAB
     Indication: Small cell lung cancer
     Route: 042
     Dates: start: 20240527
  2. TECENTRIQ [Suspect]
     Active Substance: ATEZOLIZUMAB
     Route: 042
     Dates: start: 20240527
  3. CARBOPLATIN [Concomitant]
     Active Substance: CARBOPLATIN
     Indication: Small cell lung cancer
     Dosage: DOSE: AUC 5 MG/ML/MIN, 30-60 MIN
     Route: 042
     Dates: start: 20240527
  4. ETOPOSIDE [Concomitant]
     Active Substance: ETOPOSIDE
     Indication: Small cell lung cancer
     Dosage: 60 MIN
     Dates: start: 20240527

REACTIONS (2)
  - Rheumatoid arthritis [Recovering/Resolving]
  - Pneumonia viral [Unknown]

NARRATIVE: CASE EVENT DATE: 20240701
